FAERS Safety Report 9421042 (Version 1)
Quarter: 2013Q3

REPORT INFORMATION
  Report Type: Report from Study
  Country: JP (occurrence: JP)
  Receive Date: 20130725
  Receipt Date: 20130725
  Transmission Date: 20140515
  Serious: Yes (Hospitalization)
  Sender: FDA-Public Use
  Company Number: JP-MPIJNJ-2013-02508

PATIENT
  Sex: 0

DRUGS (3)
  1. VELCADE [Suspect]
     Indication: PLASMA CELL MYELOMA
     Dosage: 1.3 MG/M2, UNK
     Route: 042
     Dates: start: 20120629, end: 20120720
  2. MELPHALAN [Suspect]
     Indication: PLASMA CELL MYELOMA
     Dosage: 10 MG, UNK
     Route: 048
     Dates: start: 20120629, end: 20120702
  3. PREDNISOLONE [Suspect]
     Indication: PLASMA CELL MYELOMA
     Dosage: 70 MG, UNK
     Route: 048
     Dates: start: 20120629, end: 20120702

REACTIONS (2)
  - C-reactive protein increased [Recovered/Resolved]
  - Bacteraemia [Recovered/Resolved]
